FAERS Safety Report 10588014 (Version 1)
Quarter: 2014Q4

REPORT INFORMATION
  Report Type: Spontaneous
  Country: IT (occurrence: IT)
  Receive Date: 20141117
  Receipt Date: 20141117
  Transmission Date: 20150529
  Serious: Yes (Other)
  Sender: FDA-Public Use
  Company Number: IT-TEVA-521960ISR

PATIENT
  Age: 27 Year
  Sex: Female

DRUGS (3)
  1. SERTRALINE [Suspect]
     Active Substance: SERTRALINE HYDROCHLORIDE
     Indication: SUICIDAL IDEATION
     Dosage: 1500 MG TOTAL
     Route: 048
     Dates: start: 20140107, end: 20140107
  2. DELORAZEPAM [Suspect]
     Active Substance: DELORAZEPAM
     Indication: SUICIDAL IDEATION
     Dosage: 30 ML TOTAL
     Route: 048
     Dates: start: 20140107, end: 20140107
  3. FLURAZEPAM [Suspect]
     Active Substance: FLURAZEPAM\FLURAZEPAM HYDROCHLORIDE
     Indication: SUICIDAL IDEATION
     Dosage: 1140 MG DAILY
     Route: 048
     Dates: start: 20140107, end: 20140107

REACTIONS (2)
  - Loss of consciousness [Recovering/Resolving]
  - Drug abuse [Recovering/Resolving]

NARRATIVE: CASE EVENT DATE: 20140107
